FAERS Safety Report 10552492 (Version 2)
Quarter: 2014Q4

REPORT INFORMATION
  Report Type: Spontaneous
  Country: NL (occurrence: NL)
  Receive Date: 20141029
  Receipt Date: 20141106
  Transmission Date: 20150529
  Serious: Yes (Hospitalization)
  Sender: FDA-Public Use
  Company Number: NL-TEVA-518156ISR

PATIENT
  Age: 1 Day
  Sex: Female

DRUGS (1)
  1. TRIMETHOPRIM SUSP ORAAL 10MG/ML [Suspect]
     Active Substance: TRIMETHOPRIM
     Indication: ANTIBIOTIC PROPHYLAXIS
     Dosage: 2 MG/KG DAILY; EXTRA INFO: 2 MG/KG/DAG IN 1 DOSIS
     Route: 048
     Dates: start: 20140430, end: 20141009

REACTIONS (2)
  - Restlessness [Recovered/Resolved]
  - Feeding disorder [Recovered/Resolved]

NARRATIVE: CASE EVENT DATE: 201405
